FAERS Safety Report 15503175 (Version 1)
Quarter: 2018Q4

REPORT INFORMATION
  Report Type: Spontaneous
  Country: US (occurrence: US)
  Receive Date: 20181008
  Receipt Date: 20181008
  Transmission Date: 20190205
  Serious: Yes (Life-Threatening)
  Sender: FDA-Public Use
  Company Number: None

PATIENT
  Age: 63 Year
  Sex: Female
  Weight: 97 kg

DRUGS (4)
  1. TIKOSYN [Suspect]
     Active Substance: DOFETILIDE
     Indication: ATRIAL FIBRILLATION
     Route: 048
     Dates: start: 20180504, end: 20180917
  2. APIXABAN 5 MG TWICE DAILY [Concomitant]
  3. METOPROLOL SUCCINATE 25 MG DAILY [Concomitant]
  4. LEVOTHYROXINE 200 MCG DAILY [Concomitant]

REACTIONS (3)
  - Ventricular fibrillation [None]
  - Cardiac arrest [None]
  - Torsade de pointes [None]

NARRATIVE: CASE EVENT DATE: 20180926
